FAERS Safety Report 25547570 (Version 1)
Quarter: 2025Q3

REPORT INFORMATION
  Report Type: Spontaneous
  Country: EU (occurrence: EU)
  Receive Date: 20250714
  Receipt Date: 20250714
  Transmission Date: 20251021
  Serious: Yes (Hospitalization)
  Sender: CHEPLAPHARM
  Company Number: None

PATIENT
  Sex: Male

DRUGS (6)
  1. QUETIAPINE [Suspect]
     Active Substance: QUETIAPINE
     Indication: Suicide attempt
     Route: 048
     Dates: start: 20141026, end: 20141026
  2. LOPERAMIDE [Suspect]
     Active Substance: LOPERAMIDE
     Indication: Suicide attempt
     Route: 048
     Dates: start: 20141026, end: 20141026
  3. MECLIZINE MONOHYDROCHLORIDE [Suspect]
     Active Substance: MECLIZINE MONOHYDROCHLORIDE
     Indication: Suicide attempt
     Route: 048
     Dates: start: 20141026, end: 20141026
  4. PROPIOMAZINE [Suspect]
     Active Substance: PROPIOMAZINE
     Indication: Suicide attempt
  5. TRIMEPRAZINE [Suspect]
     Active Substance: TRIMEPRAZINE
     Indication: Suicide attempt
     Route: 048
     Dates: start: 20141026, end: 20141026
  6. ZOLOFT [Suspect]
     Active Substance: SERTRALINE HYDROCHLORIDE
     Indication: Suicide attempt
     Route: 048
     Dates: start: 20141026, end: 20141026

REACTIONS (7)
  - Intentional overdose [Unknown]
  - Respiratory rate decreased [Recovering/Resolving]
  - Oxygen saturation decreased [Unknown]
  - Electrocardiogram QRS complex prolonged [Unknown]
  - Consciousness fluctuating [Recovering/Resolving]
  - Suicide attempt [Unknown]
  - Pyrexia [Unknown]

NARRATIVE: CASE EVENT DATE: 20141001
